FAERS Safety Report 11997521 (Version 4)
Quarter: 2017Q1

REPORT INFORMATION
  Report Type: Spontaneous
  Country: US (occurrence: US)
  Receive Date: 20160203
  Receipt Date: 20170223
  Transmission Date: 20170428
  Serious: No
  Sender: FDA-Public Use
  Company Number: US-LUNDBECK-DKLU2008649

PATIENT
  Sex: Female

DRUGS (5)
  1. NORTHERA [Suspect]
     Active Substance: DROXIDOPA
     Route: 048
     Dates: start: 20160129
  2. NORTHERA [Suspect]
     Active Substance: DROXIDOPA
     Indication: MULTIPLE SYSTEM ATROPHY
     Route: 065
  3. NORTHERA [Suspect]
     Active Substance: DROXIDOPA
     Route: 065
  4. NORTHERA [Suspect]
     Active Substance: DROXIDOPA
     Route: 065
  5. NORTHERA [Suspect]
     Active Substance: DROXIDOPA
     Route: 065

REACTIONS (13)
  - Bowel movement irregularity [Unknown]
  - Heart rate irregular [Unknown]
  - Temperature difference of extremities [Unknown]
  - Muscular weakness [Unknown]
  - Blood pressure fluctuation [Unknown]
  - Tremor [Unknown]
  - Dizziness [Unknown]
  - Hypoaesthesia [Unknown]
  - Presyncope [Unknown]
  - Drug ineffective [Unknown]
  - Cataract [Unknown]
  - Asthenia [Unknown]
  - Fall [Unknown]
